FAERS Safety Report 11917630 (Version 2)
Quarter: 2016Q1

REPORT INFORMATION
  Report Type: Spontaneous
  Country: FR (occurrence: FR)
  Receive Date: 20160114
  Receipt Date: 20160121
  Transmission Date: 20160526
  Serious: Yes (Death, Other)
  Sender: FDA-Public Use
  Company Number: FR-BAUSCH-BL-2016-001176

PATIENT
  Age: 72 Year
  Sex: Female

DRUGS (16)
  1. SERESTA [Suspect]
     Active Substance: OXAZEPAM
     Indication: MENTAL DISORDER
     Route: 048
     Dates: start: 20150515, end: 20150714
  2. RISPERDAL [Suspect]
     Active Substance: RISPERIDONE
     Route: 048
     Dates: start: 20150616, end: 20150714
  3. VALIUM [Suspect]
     Active Substance: DIAZEPAM
     Route: 048
     Dates: start: 20150713, end: 20150714
  4. TEMESTA [Suspect]
     Active Substance: LORAZEPAM
     Indication: PRODUCT USED FOR UNKNOWN INDICATION
     Route: 048
     Dates: start: 20150227, end: 20150710
  5. XENAZINE [Suspect]
     Active Substance: TETRABENAZINE
     Indication: HALLUCINATION
     Route: 048
     Dates: start: 20150311, end: 20150714
  6. KETODERM [Concomitant]
     Active Substance: KETOCONAZOLE
     Indication: PRODUCT USED FOR UNKNOWN INDICATION
     Dates: start: 20150318, end: 20150714
  7. RISPERDAL [Suspect]
     Active Substance: RISPERIDONE
     Indication: MENTAL DISORDER
     Route: 048
     Dates: start: 20150518, end: 2015
  8. NOCTAMIDE [Suspect]
     Active Substance: LORMETAZEPAM
     Indication: MENTAL DISORDER
     Route: 048
     Dates: start: 20150414, end: 20150714
  9. VALIUM [Suspect]
     Active Substance: DIAZEPAM
     Indication: AGITATION
     Route: 048
     Dates: start: 20150710, end: 20150712
  10. ANAFRANIL [Concomitant]
     Active Substance: CLOMIPRAMINE HYDROCHLORIDE
     Indication: MENTAL DISORDER
     Dates: start: 20150223, end: 20150714
  11. TRANSIPEG [Concomitant]
     Active Substance: POLYETHYLENE GLYCOL 3350
     Indication: PRODUCT USED FOR UNKNOWN INDICATION
     Dates: start: 20150324, end: 20150714
  12. KARDEGIC [Concomitant]
     Active Substance: ASPIRIN LYSINE
     Indication: PRODUCT USED FOR UNKNOWN INDICATION
     Dates: start: 20150123, end: 20150714
  13. PREVISCAN [Concomitant]
     Active Substance: FLUINDIONE
     Indication: PRODUCT USED FOR UNKNOWN INDICATION
     Dates: start: 20150223, end: 20150714
  14. NORMACOL LAVEMENT [Concomitant]
     Indication: PRODUCT USED FOR UNKNOWN INDICATION
     Dates: start: 20150714, end: 20150714
  15. GLUCOSE BAXTER [Concomitant]
     Active Substance: DEXTROSE
     Indication: PRODUCT USED FOR UNKNOWN INDICATION
     Dates: start: 20150709, end: 20150714
  16. CORDARONE [Concomitant]
     Active Substance: AMIODARONE HYDROCHLORIDE
     Indication: PRODUCT USED FOR UNKNOWN INDICATION
     Dates: start: 20150223, end: 20150714

REACTIONS (4)
  - Off label use [Recovered/Resolved]
  - Pneumonia aspiration [Unknown]
  - Dyspnoea [Unknown]
  - Respiratory depression [Fatal]

NARRATIVE: CASE EVENT DATE: 20150311
